FAERS Safety Report 19799415 (Version 1)
Quarter: 2021Q3

REPORT INFORMATION
  Report Type: Spontaneous
  Country: US (occurrence: US)
  Receive Date: 20210907
  Receipt Date: 20210907
  Transmission Date: 20211014
  Serious: No
  Sender: FDA-Public Use
  Company Number: US-PHARMING-PHAUS2021000437

PATIENT

DRUGS (1)
  1. RUCONEST [Suspect]
     Active Substance: HUMAN C1-ESTERASE INHIBITOR
     Indication: HEREDITARY ANGIOEDEMA
     Dosage: 4200 IU, TWO TO THREE TIMES A DAY
     Route: 042
     Dates: start: 201701

REACTIONS (3)
  - Overdose [Unknown]
  - Intentional product use issue [Unknown]
  - Condition aggravated [Unknown]
